FAERS Safety Report 9467984 (Version 1)
Quarter: 2013Q3

REPORT INFORMATION
  Report Type: Report from Study
  Country: US (occurrence: US)
  Receive Date: 20130821
  Receipt Date: 20130821
  Transmission Date: 20140515
  Serious: Yes (Other)
  Sender: FDA-Public Use
  Company Number: US-ABBOTT-13P-163-1132938-00

PATIENT
  Sex: Female

DRUGS (18)
  1. DENOREX RX [Suspect]
  2. ARAVA [Concomitant]
     Indication: RHEUMATOID ARTHRITIS
  3. VALTREX [Concomitant]
     Indication: ORAL HERPES
  4. DIOVAN HCT [Concomitant]
     Indication: HYPERTENSION
     Dosage: 40/25 MG QD
  5. TRAMADOL HCL [Concomitant]
     Indication: PAIN
  6. DETROL [Concomitant]
     Indication: POLLAKIURIA
  7. NEXIUM [Concomitant]
     Indication: GASTROOESOPHAGEAL REFLUX DISEASE
  8. TRAZODONE HCL [Concomitant]
     Indication: INSOMNIA
     Dosage: 1/2 TAB QHS
  9. PREDNISONE [Concomitant]
     Indication: ARTHRALGIA
  10. NIACIN [Concomitant]
     Indication: PRODUCT USED FOR UNKNOWN INDICATION
  11. BIOTIN [Concomitant]
     Indication: PRODUCT USED FOR UNKNOWN INDICATION
  12. ASPIRIN [Concomitant]
     Indication: PRODUCT USED FOR UNKNOWN INDICATION
  13. COQ10 [Concomitant]
     Indication: PRODUCT USED FOR UNKNOWN INDICATION
  14. FISH OIL [Concomitant]
     Indication: PRODUCT USED FOR UNKNOWN INDICATION
  15. MULTIVITAMIN [Concomitant]
     Indication: VITAMIN SUPPLEMENTATION
  16. CALCIUM [Concomitant]
     Indication: MINERAL SUPPLEMENTATION
  17. HUMIRA [Suspect]
     Indication: RHEUMATOID ARTHRITIS
  18. CRESTOR [Suspect]

REACTIONS (18)
  - Dizziness [Recovering/Resolving]
  - Chest pain [Recovering/Resolving]
  - Hypoaesthesia [Recovering/Resolving]
  - Fatigue [Recovering/Resolving]
  - Injection site pain [Unknown]
  - Injection site pain [Unknown]
  - Injection site urticaria [Unknown]
  - Injection site bruising [Unknown]
  - Mononucleosis syndrome [Recovered/Resolved]
  - Psoriasis [Unknown]
  - Allergy to metals [Unknown]
  - Hypersensitivity [Unknown]
  - Arthritis [Unknown]
  - Stress [Unknown]
  - Nausea [Unknown]
  - Oral herpes [Unknown]
  - Abdominal discomfort [Unknown]
  - Skin burning sensation [Recovered/Resolved]
